FAERS Safety Report 15858026 (Version 1)
Quarter: 2019Q1

REPORT INFORMATION
  Report Type: Spontaneous
  Country: US (occurrence: US)
  Receive Date: 20190123
  Receipt Date: 20190123
  Transmission Date: 20190417
  Serious: Yes (Hospitalization)
  Sender: FDA-Public Use
  Company Number: US-ASTRAZENECA-2019SE12648

PATIENT
  Age: 28006 Day
  Sex: Male
  Weight: 79.8 kg

DRUGS (4)
  1. BRILINTA [Suspect]
     Active Substance: TICAGRELOR
     Indication: MYOCARDIAL INFARCTION
     Route: 048
     Dates: start: 201810
  2. ASPIRIN. [Suspect]
     Active Substance: ASPIRIN
     Dosage: 325.0MG UNKNOWN
     Route: 065
  3. ASPIRIN. [Suspect]
     Active Substance: ASPIRIN
     Dosage: TOOK HALF A TABLET OF BABY ASPIRIN UNKNOWN
     Route: 065
  4. ASPIRIN. [Suspect]
     Active Substance: ASPIRIN
     Dosage: 325.0MG UNKNOWN
     Route: 065
     Dates: start: 20181008

REACTIONS (3)
  - Haemorrhage urinary tract [Unknown]
  - Prostatic haemorrhage [Unknown]
  - Myocardial infarction [Recovering/Resolving]
